FAERS Safety Report 16743770 (Version 1)
Quarter: 2019Q3

REPORT INFORMATION
  Report Type: Report from Study
  Country: None (occurrence: BR)
  Receive Date: 20190827
  Receipt Date: 20190827
  Transmission Date: 20191005
  Serious: Yes (Other)
  Sender: FDA-Public Use
  Company Number: BR-ABBVIE-19K-020-2794837-00

PATIENT
  Sex: Female
  Weight: 65 kg

DRUGS (1)
  1. HUMIRA [Suspect]
     Active Substance: ADALIMUMAB
     Indication: AXIAL SPONDYLOARTHRITIS
     Route: 058
     Dates: start: 20190417

REACTIONS (10)
  - Stress [Unknown]
  - Respiratory tract infection [Recovering/Resolving]
  - Urinary tract infection [Recovering/Resolving]
  - Headache [Unknown]
  - Immunodeficiency [Recovering/Resolving]
  - Leukocytosis [Unknown]
  - Urinary tract pain [Unknown]
  - Hypotension [Unknown]
  - Blood pressure diastolic increased [Unknown]
  - Renal pain [Unknown]

NARRATIVE: CASE EVENT DATE: 2019
